FAERS Safety Report 6245184-8 (Version None)
Quarter: 2009Q2

REPORT INFORMATION
  Report Type: 
  Country: None (occurrence: None)
  Receive Date: 20090625
  Receipt Date: 20090615
  Transmission Date: 20091009
  Serious: Yes (Other)
  Sender: FDA-Public Use
  Company Number: PHEH2009US06274

PATIENT
  Sex: Male

DRUGS (1)
  1. EXJADE [Suspect]
     Dosage: 1750 MG, QD
     Route: 048
     Dates: start: 20090110

REACTIONS (3)
  - BACK PAIN [None]
  - HIP ARTHROPLASTY [None]
  - TREATMENT NONCOMPLIANCE [None]
